FAERS Safety Report 23144324 (Version 1)
Quarter: 2023Q4

REPORT INFORMATION
  Report Type: Spontaneous
  Country: AU (occurrence: AU)
  Receive Date: 20231103
  Receipt Date: 20231103
  Transmission Date: 20240110
  Serious: No
  Sender: FDA-Public Use
  Company Number: AU-SCALL-2023-APC-105832

PATIENT
  Sex: Female

DRUGS (1)
  1. DUTASTERIDE [Suspect]
     Active Substance: DUTASTERIDE

REACTIONS (2)
  - Risk of future pregnancy miscarriage [Unknown]
  - Exposure during pregnancy [Unknown]
